FAERS Safety Report 7473303-4 (Version None)
Quarter: 2011Q2

REPORT INFORMATION
  Report Type: 
  Country: None (occurrence: None)
  Receive Date: 20110511
  Receipt Date: 20110503
  Transmission Date: 20111010
  Serious: Yes (Hospitalization, Disabling, Other)
  Sender: FDA-Public Use
  Company Number: SG-BAYER-2011-033637

PATIENT
  Age: 51 Year
  Sex: Female

DRUGS (6)
  1. PREDNISOLONE [Concomitant]
     Dosage: 5 MG, OM
     Route: 048
     Dates: start: 20110404
  2. PREDNISOLONE [Concomitant]
     Dosage: 2.5 MG, OM
     Route: 048
     Dates: start: 20110404
  3. NEXAVAR [Suspect]
     Indication: NON-SMALL CELL LUNG CANCER
     Dosage: 400 MG, BID
     Route: 048
     Dates: end: 20110418
  4. VINORELBINE [Suspect]
     Indication: NON-SMALL CELL LUNG CANCER
     Dosage: 20 MG, QOD
     Route: 048
     Dates: end: 20110418
  5. CODEINE PHOSPHATE [Concomitant]
     Dosage: 30 MG, TDS
     Route: 048
     Dates: start: 20110404
  6. ASPIRIN [Concomitant]
     Indication: UNEVALUABLE EVENT
     Dosage: 100 MG, OM

REACTIONS (4)
  - DIARRHOEA [None]
  - BLINDNESS [None]
  - CEREBRAL INFARCTION [None]
  - DYSPNOEA [None]
